FAERS Safety Report 9787740 (Version 4)
Quarter: 2014Q1

REPORT INFORMATION
  Report Type: Report from Study
  Country: US (occurrence: US)
  Receive Date: 20131230
  Receipt Date: 20140313
  Transmission Date: 20141002
  Serious: Yes (Hospitalization)
  Sender: FDA-Public Use
  Company Number: US-PFIZER INC-2013367801

PATIENT
  Age: 64 Year
  Sex: Male
  Weight: 79.59 kg

DRUGS (12)
  1. SORAFENIB [Suspect]
     Indication: HEPATOCELLULAR CARCINOMA
     Dosage: 200 MG, 2X/DAY
     Route: 048
     Dates: start: 20130708, end: 20131223
  2. SPIRONOLACTONE [Suspect]
     Indication: HYPERTENSION
     Dosage: 25 MG, DAILY
     Route: 048
     Dates: start: 201103, end: 20131223
  3. HYDROCHLOROTHIAZIDE [Suspect]
     Indication: HYPERTENSION
     Dosage: 25 MG, DAILY
     Route: 048
     Dates: start: 20130709, end: 20131223
  4. TEMSIROLIMUS [Suspect]
     Indication: HEPATOCELLULAR CARCINOMA
     Dosage: 7.5 MG, WEEKLY
     Route: 042
     Dates: start: 20130708, end: 20131223
  5. POTASSIUM SUPPLIMENT [Concomitant]
     Dosage: UNK
  6. VENLAFAXINE [Concomitant]
     Dosage: UNK
  7. MOXIFLOXACIN [Concomitant]
     Dosage: UNK
  8. OMEPRAZOLE [Concomitant]
     Dosage: UNK
  9. METHYLPENIDATE [Concomitant]
     Dosage: UNK
  10. AMLODIPINE [Concomitant]
     Dosage: UNK
  11. ASCORBIC ACID [Concomitant]
     Dosage: UNK
  12. BENAZIPRIL [Concomitant]
     Dosage: UNK

REACTIONS (2)
  - Gastrointestinal haemorrhage [Recovered/Resolved]
  - Dehydration [Recovered/Resolved]
